FAERS Safety Report 25103020 (Version 1)
Quarter: 2025Q1

REPORT INFORMATION
  Report Type: Report from Study
  Country: CN (occurrence: CN)
  Receive Date: 20250321
  Receipt Date: 20250321
  Transmission Date: 20250409
  Serious: No
  Sender: MERCK SHARP & DOHME LLC
  Company Number: CN-009507513-2266908

PATIENT
  Age: 60 Year
  Sex: Male
  Weight: 80 kg

DRUGS (1)
  1. LAGEVRIO [Suspect]
     Active Substance: MOLNUPIRAVIR
     Indication: COVID-19 treatment
     Dosage: THE PRESCRIBING INFORMATION, THE ACTUAL ADMINISTRATION INFORMATION WAS UNKNOWN
     Route: 065
     Dates: start: 20230907, end: 20230913

REACTIONS (1)
  - Product prescribing issue [Unknown]
